FAERS Safety Report 10168570 (Version 2)
Quarter: 2014Q2

REPORT INFORMATION
  Report Type: Spontaneous
  Country: US (occurrence: US)
  Receive Date: 20140513
  Receipt Date: 20140612
  Transmission Date: 20141212
  Serious: Yes (Hospitalization, Other)
  Sender: FDA-Public Use
  Company Number: US-ROCHE-1400033

PATIENT
  Age: 67 Year
  Sex: Male
  Weight: 79 kg

DRUGS (1)
  1. XOLAIR [Suspect]
     Indication: ASTHMA
     Route: 058
     Dates: start: 20140423

REACTIONS (6)
  - Dyspnoea [Unknown]
  - Chest discomfort [Recovered/Resolved]
  - Infection [Unknown]
  - Chest pain [Recovered/Resolved]
  - Asthenia [Unknown]
  - Dizziness [Unknown]
